FAERS Safety Report 19609153 (Version 1)
Quarter: 2021Q3

REPORT INFORMATION
  Report Type: Spontaneous
  Country: US (occurrence: US)
  Receive Date: 20210725
  Receipt Date: 20210725
  Transmission Date: 20211014
  Serious: No
  Sender: FDA-Public Use
  Company Number: None

PATIENT
  Age: 52 Year
  Sex: Female
  Weight: 71.1 kg

DRUGS (9)
  1. BACLOFEN. [Concomitant]
     Active Substance: BACLOFEN
  2. VITAMIN D [Concomitant]
     Active Substance: VITAMIN D NOS
  3. PREBIOTIC + PROBIOTIC [Concomitant]
  4. VYVANSE [Concomitant]
     Active Substance: LISDEXAMFETAMINE DIMESYLATE
  5. LORATADINE. [Concomitant]
     Active Substance: LORATADINE
  6. AMBEREN [Concomitant]
  7. TRAZODONE [Concomitant]
     Active Substance: TRAZODONE HYDROCHLORIDE
  8. BABY ASPIRIN [Concomitant]
     Active Substance: ASPIRIN
  9. VIIBRYD [Suspect]
     Active Substance: VILAZODONE HYDROCHLORIDE
     Indication: DEPRESSION
     Dosage: ?          QUANTITY:1 TABLET(S);?
     Route: 048
     Dates: start: 20210628, end: 20210720

REACTIONS (4)
  - Hot flush [None]
  - Sleep disorder [None]
  - Abdominal discomfort [None]
  - Night sweats [None]

NARRATIVE: CASE EVENT DATE: 20210721
